FAERS Safety Report 11291719 (Version 1)
Quarter: 2015Q3

REPORT INFORMATION
  Report Type: Spontaneous
  Country: US (occurrence: None)
  Receive Date: 20150721
  Receipt Date: 20150721
  Transmission Date: 20151125
  Serious: Yes (Hospitalization)
  Sender: FDA-Public Use
  Company Number: None

PATIENT
  Age: 62 Year
  Sex: Male
  Weight: 66.8 kg

DRUGS (1)
  1. ASPIRIN. [Suspect]
     Active Substance: ASPIRIN
     Route: 048
     Dates: start: 20110728, end: 20150710

REACTIONS (7)
  - Gastric haemorrhage [None]
  - Anaemia [None]
  - Upper gastrointestinal haemorrhage [None]
  - Gastric ulcer [None]
  - Pneumonia klebsiella [None]
  - Duodenal ulcer [None]
  - Urinary tract infection [None]

NARRATIVE: CASE EVENT DATE: 20150708
